FAERS Safety Report 4354826-3 (Version None)
Quarter: 2004Q2

REPORT INFORMATION
  Report Type: 
  Country: None (occurrence: None)
  Receive Date: 20040507
  Receipt Date: 20040430
  Transmission Date: 20050107
  Serious: Yes (Other)
  Sender: FDA-Public Use
  Company Number: CA-ROCHE-366383

PATIENT
  Age: 18 Year
  Sex: Male

DRUGS (1)
  1. ACCUTANE [Suspect]
     Indication: DRUG USE FOR UNKNOWN INDICATION
     Route: 048

REACTIONS (6)
  - DIABETES MELLITUS [None]
  - HYPERGLYCAEMIA [None]
  - KETONURIA [None]
  - PANCREATITIS [None]
  - VOMITING [None]
  - WEIGHT DECREASED [None]
